FAERS Safety Report 4609947-4 (Version None)
Quarter: 2005Q1

REPORT INFORMATION
  Report Type: 
  Country: None (occurrence: None)
  Receive Date: 20050314
  Receipt Date: 20050302
  Transmission Date: 20050727
  Serious: Yes (Life-Threatening)
  Sender: FDA-Public Use
  Company Number: 001-#3#2005-00054

PATIENT
  Age: 60 Year
  Sex: Male

DRUGS (1)
  1. ALPROSTADIL [Suspect]
     Indication: VASCULAR BYPASS GRAFT
     Dosage: 1.60 MCG, INTRAVENOUS
     Route: 042
     Dates: start: 20041108, end: 20041109

REACTIONS (3)
  - LEFT VENTRICULAR FAILURE [None]
  - TROPONIN INCREASED [None]
  - VENTRICULAR TACHYCARDIA [None]
